FAERS Safety Report 9580326 (Version 1)
Quarter: 2013Q3

REPORT INFORMATION
  Report Type: Spontaneous
  Country: None (occurrence: None)
  Receive Date: 20130930
  Receipt Date: 20130930
  Transmission Date: 20140515
  Serious: Yes (Other)
  Sender: FDA-Public Use
  Company Number: GER/UKI/13/0034720

PATIENT
  Age: 64 Year
  Sex: Male
  Weight: 82.55 kg

DRUGS (4)
  1. AMLODIPINE [Suspect]
     Indication: HYPERTENSION
     Dosage: 5 MG, 1 IN 1 D, ORAL
     Route: 048
     Dates: start: 20130528, end: 20130808
  2. GLICLAZID ( GLICLAZIDE) [Concomitant]
  3. INSULIN GLARGINE ( INSULIN GLARGINE) [Concomitant]
  4. METFORMIN (METFORMIN) [Concomitant]

REACTIONS (7)
  - Joint swelling [None]
  - Blister [None]
  - Eye oedema [None]
  - Fluid imbalance [None]
  - Rash [None]
  - Local swelling [None]
  - Visual impairment [None]
